FAERS Safety Report 18173098 (Version 1)
Quarter: 2020Q3

REPORT INFORMATION
  Report Type: Spontaneous
  Country: IN (occurrence: IN)
  Receive Date: 20200819
  Receipt Date: 20200819
  Transmission Date: 20201103
  Serious: Yes (Life-Threatening, Hospitalization)
  Sender: FDA-Public Use
  Company Number: IN-GE HEALTHCARE LIFE SCIENCES-2020CSU003562

PATIENT

DRUGS (2)
  1. OMNIPAQUE [Suspect]
     Active Substance: IOHEXOL
     Indication: ANGIOCARDIOGRAM
     Dosage: UNK UNK, SINGLE
     Route: 013
  2. OMNIPAQUE [Suspect]
     Active Substance: IOHEXOL
     Indication: ACUTE CORONARY SYNDROME

REACTIONS (2)
  - Acute kidney injury [Recovered/Resolved]
  - Pancreatitis acute [Recovered/Resolved]
